FAERS Safety Report 16965672 (Version 2)
Quarter: 2019Q4

REPORT INFORMATION
  Report Type: Report from Study
  Country: US (occurrence: US)
  Receive Date: 20191028
  Receipt Date: 20191118
  Transmission Date: 20200122
  Serious: Yes (Other)
  Sender: FDA-Public Use
  Company Number: US-ASTELLAS-2019US042150

PATIENT
  Sex: Male

DRUGS (2)
  1. ENZALUTAMIDE [Suspect]
     Active Substance: ENZALUTAMIDE
     Route: 048
     Dates: start: 201910
  2. ENZALUTAMIDE [Suspect]
     Active Substance: ENZALUTAMIDE
     Indication: PROSTATE CANCER
     Route: 048
     Dates: start: 20190121

REACTIONS (7)
  - Asthenia [Unknown]
  - Diarrhoea [Recovering/Resolving]
  - Fatigue [Recovering/Resolving]
  - Depressed level of consciousness [Recovering/Resolving]
  - Gait disturbance [Recovering/Resolving]
  - Dizziness [Recovering/Resolving]
  - Abdominal discomfort [Unknown]
